FAERS Safety Report 9289406 (Version 1)
Quarter: 2013Q2

REPORT INFORMATION
  Report Type: Report from Study
  Country: US (occurrence: US)
  Receive Date: 20130514
  Receipt Date: 20130514
  Transmission Date: 20140414
  Serious: Yes (Other)
  Sender: FDA-Public Use
  Company Number: US-US-EMD SERONO, INC.-7210516

PATIENT
  Age: 22 Year
  Sex: Female

DRUGS (1)
  1. REBIF [Suspect]
     Indication: PRODUCT USED FOR UNKNOWN INDICATION
     Dates: start: 20120907, end: 201304

REACTIONS (4)
  - Endometriosis [Not Recovered/Not Resolved]
  - Loss of consciousness [Unknown]
  - Road traffic accident [Unknown]
  - Drug ineffective [Unknown]
